FAERS Safety Report 8421703-8 (Version None)
Quarter: 2012Q2

REPORT INFORMATION
  Report Type: 
  Country: None (occurrence: None)
  Receive Date: 20120608
  Receipt Date: 20110826
  Transmission Date: 20120825
  Serious: No
  Sender: FDA-Public Use
  Company Number: US-GLAXOSMITHKLINE-A0942531A

PATIENT
  Age: 68 Year
  Sex: Female

DRUGS (3)
  1. ALTABAX [Suspect]
     Indication: STAPHYLOCOCCAL INFECTION
     Route: 061
     Dates: start: 20110826, end: 20110826
  2. NO CONCURRENT MEDICATION [Concomitant]
  3. SOLODYN [Concomitant]
     Indication: STAPHYLOCOCCAL INFECTION
     Route: 048

REACTIONS (2)
  - PRURITUS [None]
  - HYPERSENSITIVITY [None]
